FAERS Safety Report 7472763-2 (Version None)
Quarter: 2011Q2

REPORT INFORMATION
  Report Type: 
  Country: None (occurrence: None)
  Receive Date: 20110511
  Receipt Date: 20110428
  Transmission Date: 20111010
  Serious: Yes (Other)
  Sender: FDA-Public Use
  Company Number: US-JNJFOC-20110412502

PATIENT
  Sex: Female
  Weight: 84.82 kg

DRUGS (3)
  1. REMICADE [Suspect]
     Indication: RHEUMATOID ARTHRITIS
     Route: 042
  2. DIURETIC [Concomitant]
     Indication: CARDIAC DISORDER
     Route: 048
  3. VICTOZA [Concomitant]
     Indication: DIABETES MELLITUS
     Route: 058

REACTIONS (3)
  - FATIGUE [None]
  - DEHYDRATION [None]
  - ACTIVITIES OF DAILY LIVING IMPAIRED [None]
